FAERS Safety Report 18199825 (Version 1)
Quarter: 2020Q3

REPORT INFORMATION
  Report Type: Spontaneous
  Country: GB (occurrence: GB)
  Receive Date: 20200827
  Receipt Date: 20200827
  Transmission Date: 20201103
  Serious: Yes (Hospitalization, Other)
  Sender: FDA-Public Use
  Company Number: GB-SA-2020SA222165

PATIENT

DRUGS (2)
  1. KEVZARA [Suspect]
     Active Substance: SARILUMAB
     Indication: RHEUMATOID ARTHRITIS
     Dosage: UNK
     Dates: start: 20190820
  2. SULPHASALAZINE [Concomitant]
     Active Substance: SULFASALAZINE
     Dosage: UNK
     Dates: start: 20180615

REACTIONS (11)
  - Abdominal distension [Unknown]
  - Blood lactic acid increased [Unknown]
  - Diarrhoea [Unknown]
  - Vomiting [Unknown]
  - Abdominal tenderness [Unknown]
  - Urinary retention [Unknown]
  - Viral diarrhoea [Unknown]
  - Diarrhoea [Recovered/Resolved]
  - Abdominal pain [Unknown]
  - Tachycardia [Unknown]
  - Pain [Unknown]

NARRATIVE: CASE EVENT DATE: 20191212
